FAERS Safety Report 8538563-7 (Version None)
Quarter: 2012Q3

REPORT INFORMATION
  Report Type: 
  Country: None (occurrence: None)
  Receive Date: 20120726
  Receipt Date: 20120720
  Transmission Date: 20120928
  Serious: Yes (Other)
  Sender: FDA-Public Use
  Company Number: US-BAYER-2012-074227

PATIENT
  Sex: Female

DRUGS (1)
  1. BETASERON [Suspect]
     Indication: PRODUCT USED FOR UNKNOWN INDICATION
     Dosage: .25 MG, QOD
     Route: 058
     Dates: start: 20080401

REACTIONS (2)
  - MULTIPLE SCLEROSIS RELAPSE [None]
  - GAIT DISTURBANCE [None]
